FAERS Safety Report 13741078 (Version 2)
Quarter: 2017Q3

REPORT INFORMATION
  Report Type: Spontaneous
  Country: CN (occurrence: CN)
  Receive Date: 20170711
  Receipt Date: 20170728
  Transmission Date: 20171127
  Serious: Yes (Hospitalization, Other)
  Sender: FDA-Public Use
  Company Number: CN-ACCORD-053183

PATIENT
  Age: 61 Year
  Sex: Female

DRUGS (9)
  1. MELITRACEN/MELITRACEN HYDROCHLORIDE [Suspect]
     Active Substance: MELITRACEN
     Indication: PRODUCT USED FOR UNKNOWN INDICATION
  2. NITRAZEPAM [Suspect]
     Active Substance: NITRAZEPAM
     Indication: PRODUCT USED FOR UNKNOWN INDICATION
  3. HALOPERIDOL. [Suspect]
     Active Substance: HALOPERIDOL
     Indication: MEIGE^S SYNDROME
     Dosage: HALOPERIDOL TABLETS 2MG AT NIGHT
  4. LEXAPRO [Suspect]
     Active Substance: ESCITALOPRAM OXALATE
     Indication: MEIGE^S SYNDROME
  5. ZYPREXA [Suspect]
     Active Substance: OLANZAPINE
     Indication: MEIGE^S SYNDROME
     Dosage: 1.25-3.75 MG PER NIGHT
  6. LORAZEPAM. [Suspect]
     Active Substance: LORAZEPAM
     Indication: PRODUCT USED FOR UNKNOWN INDICATION
  7. FLUPENTIXOL/FLUPENTIXOL DECANOATE/FLUPENTIXOL DIHYDROCHLORIDE [Suspect]
     Active Substance: FLUPENTIXOL
     Indication: PRODUCT USED FOR UNKNOWN INDICATION
  8. CLONAZEPAM. [Suspect]
     Active Substance: CLONAZEPAM
     Indication: MEIGE^S SYNDROME
     Dosage: LATER 10 MG/DAY, EVERY NIGHT GIVEN FOR ANXIETY
     Route: 042
  9. PAROXETINE. [Suspect]
     Active Substance: PAROXETINE
     Indication: MEIGS^ SYNDROME

REACTIONS (6)
  - Meige^s syndrome [None]
  - Social problem [None]
  - Condition aggravated [Recovered/Resolved]
  - Loss of personal independence in daily activities [None]
  - Gastrointestinal disorder [Unknown]
  - Drug intolerance [None]
